FAERS Safety Report 22300566 (Version 1)
Quarter: 2023Q2

REPORT INFORMATION
  Report Type: Spontaneous
  Country: US (occurrence: US)
  Receive Date: 20230509
  Receipt Date: 20230509
  Transmission Date: 20230721
  Serious: No
  Sender: FDA-Public Use
  Company Number: US-GE HEALTHCARE-2023CSU001201

PATIENT
  Age: 21 Year
  Sex: Male
  Weight: 68.027 kg

DRUGS (3)
  1. OMNIPAQUE [Suspect]
     Active Substance: IOHEXOL
     Indication: Computerised tomogram head
     Dosage: 100 ML, SINGLE
     Route: 042
     Dates: start: 20230220, end: 20230220
  2. OMNIPAQUE [Suspect]
     Active Substance: IOHEXOL
     Indication: Headache
  3. OMNIPAQUE [Suspect]
     Active Substance: IOHEXOL
     Indication: Eye pain

REACTIONS (1)
  - Throat tightness [Recovered/Resolved]

NARRATIVE: CASE EVENT DATE: 20230220
